FAERS Safety Report 8295108-7 (Version None)
Quarter: 2012Q2

REPORT INFORMATION
  Report Type: 
  Country: None (occurrence: None)
  Receive Date: 20120418
  Receipt Date: 20120409
  Transmission Date: 20120825
  Serious: Yes (Hospitalization, Other)
  Sender: FDA-Public Use
  Company Number: US-ASTRAZENECA-2011SE04370

PATIENT
  Age: 61 Year
  Sex: Female

DRUGS (5)
  1. COUMADIN [Concomitant]
  2. NEXIUM [Suspect]
     Route: 048
  3. CRESTOR [Suspect]
     Route: 048
  4. SYMBICORT [Suspect]
     Indication: ASTHMA
     Route: 055
  5. PANCREATITIS MEDICATION [Concomitant]

REACTIONS (14)
  - PANCREATITIS CHRONIC [None]
  - RETROPERITONEAL HAEMATOMA [None]
  - GASTRIC HAEMORRHAGE [None]
  - FULL BLOOD COUNT DECREASED [None]
  - HIATUS HERNIA [None]
  - PNEUMONIA BACTERIAL [None]
  - PAIN [None]
  - CEREBROVASCULAR ACCIDENT [None]
  - GASTROOESOPHAGEAL REFLUX DISEASE [None]
  - ASTHMA [None]
  - MALAISE [None]
  - VOCAL CORD DISORDER [None]
  - CHEST DISCOMFORT [None]
  - GENERAL PHYSICAL HEALTH DETERIORATION [None]
